FAERS Safety Report 6343442-X (Version None)
Quarter: 2009Q3

REPORT INFORMATION
  Report Type: 
  Country: None (occurrence: None)
  Receive Date: 20090908
  Receipt Date: 20090904
  Transmission Date: 20100115
  Serious: Yes (Death)
  Sender: FDA-Public Use
  Company Number: PHHY2009BR37423

PATIENT
  Age: 71 Year
  Sex: Female

DRUGS (4)
  1. FORASEQ [Suspect]
     Indication: EMPHYSEMA
     Dosage: 1 INHALATION WITH EACH ACTIVE PRINCIPLE, TWICE A DAY
  2. FORASEQ [Suspect]
     Indication: HYPOXIA
  3. FORASEQ [Suspect]
     Indication: DYSPNOEA
  4. FLUIR [Concomitant]
     Indication: DYSPNOEA
     Dosage: 1 INHALATION DAILY

REACTIONS (5)
  - DIZZINESS [None]
  - DYSGEUSIA [None]
  - METASTASIS [None]
  - MULTI-ORGAN FAILURE [None]
  - NECROSIS [None]
